FAERS Safety Report 5798424-3 (Version None)
Quarter: 2008Q3

REPORT INFORMATION
  Report Type: 
  Country: None (occurrence: None)
  Receive Date: 20080702
  Receipt Date: 20080623
  Transmission Date: 20090109
  Serious: Yes (Hospitalization)
  Sender: FDA-Public Use
  Company Number: US-KINGPHARMUSA00001-K200800728

PATIENT

DRUGS (2)
  1. CYTOMEL [Suspect]
     Indication: POST PROCEDURAL HYPOTHYROIDISM
     Dosage: 10 MCG, BID
     Route: 048
  2. LEVOXYL [Suspect]
     Indication: POST PROCEDURAL HYPOTHYROIDISM
     Dosage: 75 MCG, BID
     Route: 048

REACTIONS (8)
  - ACCIDENTAL OVERDOSE [None]
  - DRUG DISPENSING ERROR [None]
  - HYPERHIDROSIS [None]
  - HYPERTHYROIDISM [None]
  - PALPITATIONS [None]
  - SPEECH DISORDER [None]
  - TACHYCARDIA [None]
  - WEIGHT DECREASED [None]
